FAERS Safety Report 9121082 (Version 3)
Quarter: 2013Q2

REPORT INFORMATION
  Report Type: Report from Study
  Country: MX (occurrence: MX)
  Receive Date: 20130226
  Receipt Date: 20130422
  Transmission Date: 20140414
  Serious: Yes (Other)
  Sender: FDA-Public Use
  Company Number: PHHY2013MX017337

PATIENT
  Sex: Male

DRUGS (8)
  1. GLIVEC [Suspect]
     Indication: CHRONIC MYELOID LEUKAEMIA
     Dosage: 400 MG
     Route: 048
     Dates: start: 20081021
  2. GLIVEC [Suspect]
     Dosage: 600 MG
     Route: 048
     Dates: start: 20081111
  3. GLIVEC [Suspect]
     Dosage: 800 MG DAILY
     Route: 048
  4. GLIVEC [Suspect]
     Dosage: 500 MG DAILY
     Route: 048
     Dates: start: 20120823
  5. ARA-C [Concomitant]
     Dosage: 3 DF, EVERY THIRD DAY
     Route: 058
     Dates: start: 20130129
  6. ARA-C [Concomitant]
     Dosage: 3 DF, QD
     Route: 058
     Dates: start: 20130129
  7. HYDRALAZINE [Concomitant]
     Dosage: UNK UKN, QD
     Dates: start: 20130313
  8. VALPROATE MAGNESIUM [Concomitant]
     Dosage: 700 MG, Q8H
     Dates: start: 20130313

REACTIONS (6)
  - Limb injury [Unknown]
  - Wound [Recovering/Resolving]
  - Dermatitis allergic [Not Recovered/Not Resolved]
  - Treatment failure [Not Recovered/Not Resolved]
  - No therapeutic response [Not Recovered/Not Resolved]
  - Hyperuricaemia [Not Recovered/Not Resolved]
